FAERS Safety Report 5219117-7 (Version None)
Quarter: 2007Q1

REPORT INFORMATION
  Report Type: 
  Country: None (occurrence: None)
  Receive Date: 20070124
  Receipt Date: 20070124
  Transmission Date: 20070707
  Serious: Yes (Life-Threatening, Hospitalization)
  Sender: FDA-Public Use
  Company Number: None

PATIENT
  Age: 64 Year
  Sex: Female
  Weight: 76.2043 kg

DRUGS (1)
  1. MITOXANTRONE [Suspect]
     Dosage: 22 MG  X3 EVERY MONTHS  IV
     Route: 042

REACTIONS (1)
  - LUNG ADENOCARCINOMA [None]
